FAERS Safety Report 5728164-8 (Version None)
Quarter: 2008Q2

REPORT INFORMATION
  Report Type: 
  Country: None (occurrence: None)
  Receive Date: 20080505
  Receipt Date: 20080425
  Transmission Date: 20081010
  Serious: Yes (Other)
  Sender: FDA-Public Use
  Company Number: GB-ABBOTT-08P-167-0450323-00

PATIENT
  Sex: Female

DRUGS (3)
  1. VALPROATE SODIUM [Suspect]
     Indication: EPILEPSY
     Dosage: 500 MG TWICE DAILY
     Route: 048
     Dates: end: 20080302
  2. VALPROATE SODIUM [Suspect]
     Dosage: 1200 MG TWICE DAILY
     Route: 048
     Dates: start: 19980302
  3. FOLIC ACID [Concomitant]
     Indication: VITAMIN SUPPLEMENTATION
     Route: 048

REACTIONS (1)
  - GRAND MAL CONVULSION [None]
